FAERS Safety Report 5944096-4 (Version None)
Quarter: 2008Q4

REPORT INFORMATION
  Report Type: 
  Country: None (occurrence: None)
  Receive Date: 20081021
  Receipt Date: 20080710
  Transmission Date: 20090506
  Serious: Yes (Other)
  Sender: FDA-Public Use
  Company Number: US-WYE-H04939108

PATIENT
  Age: 66 Year
  Sex: Female
  Weight: 70.37 kg

DRUGS (6)
  1. PREMARIN [Suspect]
     Indication: HOT FLUSH
     Dosage: 0.3 MG 1X PER 2 DAY, ORAL ; 0.3MG AT UNSPECIFIED FREQUENCY, ORAL
     Route: 048
     Dates: end: 20070501
  2. PREMARIN [Suspect]
     Indication: MENOPAUSAL SYMPTOMS
     Dosage: 0.3 MG 1X PER 2 DAY, ORAL ; 0.3MG AT UNSPECIFIED FREQUENCY, ORAL
     Route: 048
     Dates: end: 20070501
  3. PREMARIN [Suspect]
     Indication: HOT FLUSH
     Dosage: 0.3 MG 1X PER 2 DAY, ORAL ; 0.3MG AT UNSPECIFIED FREQUENCY, ORAL
     Route: 048
     Dates: start: 20080401
  4. PREMARIN [Suspect]
     Indication: MENOPAUSAL SYMPTOMS
     Dosage: 0.3 MG 1X PER 2 DAY, ORAL ; 0.3MG AT UNSPECIFIED FREQUENCY, ORAL
     Route: 048
     Dates: start: 20080401
  5. ATENOLOL [Concomitant]
  6. ACIPHEX [Concomitant]

REACTIONS (4)
  - HEADACHE [None]
  - HEART RATE INCREASED [None]
  - PALPITATIONS [None]
  - VISUAL IMPAIRMENT [None]
